FAERS Safety Report 6023360-7 (Version None)
Quarter: 2008Q4

REPORT INFORMATION
  Report Type: 
  Country: None (occurrence: None)
  Receive Date: 20081223
  Receipt Date: 20081209
  Transmission Date: 20090506
  Serious: Yes (Other)
  Sender: FDA-Public Use
  Company Number: 2008S1021885

PATIENT
  Age: 62 Year
  Sex: Female

DRUGS (1)
  1. LEVOTHYROXINE SODIUM [Suspect]
     Indication: GOITRE
     Dosage: 100 UG; DAILY; ORAL
     Route: 048

REACTIONS (14)
  - ALOPECIA TOTALIS [None]
  - BLOOD ALBUMIN DECREASED [None]
  - CRONKHITE-CANADA SYNDROME [None]
  - DIARRHOEA [None]
  - DYSGEUSIA [None]
  - GLOSSITIS [None]
  - INFLAMMATION [None]
  - INTESTINAL POLYP [None]
  - NAIL DYSTROPHY [None]
  - NORMOCHROMIC NORMOCYTIC ANAEMIA [None]
  - ORAL DISCOMFORT [None]
  - PROTEIN-LOSING GASTROENTEROPATHY [None]
  - SKIN HYPERPIGMENTATION [None]
  - WEIGHT DECREASED [None]
